FAERS Safety Report 6482419-0 (Version None)
Quarter: 2009Q4

REPORT INFORMATION
  Report Type: 
  Country: None (occurrence: None)
  Receive Date: 20091208
  Receipt Date: 20090509
  Transmission Date: 20100525
  Serious: No
  Sender: FDA-Public Use
  Company Number: US-AMGEN-TCS346487

PATIENT
  Sex: Male

DRUGS (2)
  1. ENBREL [Suspect]
     Indication: RHEUMATOID ARTHRITIS
     Route: 058
     Dates: start: 20090404
  2. HYDROXYCHLOROQUINE SULFATE [Concomitant]
     Dates: start: 20090101

REACTIONS (3)
  - ANXIETY [None]
  - HYPOAESTHESIA [None]
  - PARAESTHESIA [None]
